FAERS Safety Report 4977415-6 (Version None)
Quarter: 2006Q2

REPORT INFORMATION
  Report Type: 
  Country: None (occurrence: None)
  Receive Date: 20060413
  Receipt Date: 20060330
  Transmission Date: 20061013
  Serious: Yes (Hospitalization)
  Sender: FDA-Public Use
  Company Number: 2006BP-03636RO

PATIENT
  Age: 37 Year
  Sex: Female

DRUGS (3)
  1. METHADONE HCL [Suspect]
     Indication: DRUG REHABILITATION
     Dosage: 100 MG DAILY
  2. COCAINE (COCAINE) [Concomitant]
  3. OPIOIDS (OPIOIDS) [Concomitant]

REACTIONS (4)
  - BLOOD MAGNESIUM INCREASED [None]
  - BLOOD POTASSIUM DECREASED [None]
  - ELECTROCARDIOGRAM QT CORRECTED INTERVAL PROLONGED [None]
  - VENTRICULAR FIBRILLATION [None]
